FAERS Safety Report 7815479 (Version 15)
Quarter: 2013Q4

REPORT INFORMATION
  Report Type: Spontaneous
  Country: US (occurrence: US)
  Receive Date: 20110216
  Receipt Date: 20131101
  Transmission Date: 20140711
  Serious: Yes (Other)
  Sender: FDA-Public Use
  Company Number: PHHY2011US10023

PATIENT
  Sex: Male
  Weight: 91.16 kg

DRUGS (8)
  1. ZOMETA [Suspect]
     Indication: BONE CANCER
     Dates: start: 2006, end: 200801
  2. JEVTANA [Concomitant]
     Dates: start: 2006
  3. OXYCONTIN [Concomitant]
     Dosage: 80 MG, TID
  4. LUPRON [Concomitant]
  5. TEMAZEPAM [Concomitant]
  6. DOCETAXEL [Concomitant]
     Dates: start: 200910, end: 201003
  7. MITOXANTRONE [Concomitant]
  8. CASODEX [Concomitant]

REACTIONS (127)
  - Osteonecrosis of jaw [Not Recovered/Not Resolved]
  - Infection [Unknown]
  - Road traffic accident [Unknown]
  - Exposed bone in jaw [Unknown]
  - Diabetes mellitus [Unknown]
  - Arthritis [Unknown]
  - Emphysema [Unknown]
  - Phlebolith [Unknown]
  - Spinal osteoarthritis [Unknown]
  - Splenic granuloma [Unknown]
  - Neuropathy peripheral [Unknown]
  - Hypertension [Unknown]
  - Bone swelling [Unknown]
  - Pain in jaw [Unknown]
  - Rotator cuff syndrome [Unknown]
  - Depression [Unknown]
  - Amnesia [Unknown]
  - Neoplasm [Unknown]
  - Intervertebral disc degeneration [Unknown]
  - Renal cyst [Unknown]
  - Muscle atrophy [Unknown]
  - Intervertebral disc protrusion [Unknown]
  - Arthralgia [Not Recovered/Not Resolved]
  - Musculoskeletal pain [Unknown]
  - Back pain [Not Recovered/Not Resolved]
  - Bone pain [Unknown]
  - Hepatic steatosis [Unknown]
  - Gastric ulcer [Unknown]
  - Duodenal ulcer [Unknown]
  - Dysphagia [Unknown]
  - Gastrooesophageal reflux disease [Unknown]
  - Oesophagitis ulcerative [Unknown]
  - Hand fracture [Unknown]
  - Foot fracture [Unknown]
  - Hiatus hernia [Unknown]
  - Haematemesis [Unknown]
  - Gastrointestinal haemorrhage [Unknown]
  - Oedema peripheral [Recovered/Resolved]
  - Spinal compression fracture [Unknown]
  - Pulmonary granuloma [Unknown]
  - Pulmonary calcification [Unknown]
  - Hepatic cyst [Unknown]
  - Fall [Unknown]
  - Diarrhoea [Unknown]
  - Jaw fracture [Unknown]
  - Pancreatitis chronic [Unknown]
  - Colon adenoma [Unknown]
  - Hyperkeratosis [Unknown]
  - Hypoaesthesia oral [Unknown]
  - Lipoma [Unknown]
  - Alcohol withdrawal syndrome [Unknown]
  - Anaemia [Unknown]
  - Localised oedema [Unknown]
  - Sialoadenitis [Unknown]
  - Exostosis [Unknown]
  - Osteoarthritis [Unknown]
  - Atelectasis [Unknown]
  - Paraesthesia [Unknown]
  - Osteoporosis [Unknown]
  - Ear pain [Unknown]
  - Conjunctivitis [Unknown]
  - Sinusitis [Unknown]
  - Pain in extremity [Unknown]
  - Epicondylitis [Unknown]
  - Colitis microscopic [Unknown]
  - Muscle spasms [Unknown]
  - Muscular weakness [Unknown]
  - Cellulitis [Unknown]
  - Clostridium difficile infection [Unknown]
  - Abdominal pain [Unknown]
  - Lung infiltration [Unknown]
  - Pulmonary mass [Unknown]
  - Melanocytic naevus [Unknown]
  - Neurofibroma [Unknown]
  - Tendon calcification [Unknown]
  - Skin cancer [Unknown]
  - Actinic keratosis [Unknown]
  - Periodontal disease [Unknown]
  - Tonsillar hypertrophy [Unknown]
  - Aortic calcification [Unknown]
  - Arteriosclerosis [Unknown]
  - Anxiety [Unknown]
  - Clavicle fracture [Unknown]
  - Rash pruritic [Unknown]
  - Musculoskeletal chest pain [Unknown]
  - Dermatitis [Unknown]
  - Insomnia [Unknown]
  - Otitis externa [Unknown]
  - Nasal neoplasm benign [Unknown]
  - Chronic obstructive pulmonary disease [Unknown]
  - Erectile dysfunction [Unknown]
  - Peptic ulcer [Unknown]
  - Pleuritic pain [Unknown]
  - Gynaecomastia [Unknown]
  - Joint effusion [Unknown]
  - Osteolysis [Unknown]
  - Lordosis [Unknown]
  - Chest pain [Unknown]
  - Dyspnoea [Unknown]
  - Coronary artery disease [Unknown]
  - Squamous cell carcinoma of skin [Unknown]
  - Second primary malignancy [Unknown]
  - Respiratory disorder [Unknown]
  - Metaplasia [Unknown]
  - Melaena [Unknown]
  - Lymphadenopathy [Unknown]
  - Goitre [Unknown]
  - Diaphragmatic hernia [Unknown]
  - Liver disorder [Unknown]
  - Arthropathy [Unknown]
  - Vertebral foraminal stenosis [Unknown]
  - Sarcoma [Unknown]
  - Ureteral disorder [Unknown]
  - Enthesopathy [Unknown]
  - Weight decreased [Unknown]
  - Dyspepsia [Unknown]
  - Gait disturbance [Unknown]
  - Tenosynovitis [Unknown]
  - Injury [Unknown]
  - Tooth loss [Unknown]
  - Tonsillitis [Unknown]
  - Rheumatoid arthritis [Unknown]
  - Bursitis [Unknown]
  - Plantar fasciitis [Unknown]
  - Joint contracture [Unknown]
  - Tendon disorder [Unknown]
  - Erythema [Unknown]
